FAERS Safety Report 4802394-1 (Version None)
Quarter: 2005Q4

REPORT INFORMATION
  Report Type: 
  Country: None (occurrence: None)
  Receive Date: 20051014
  Receipt Date: 20040920
  Transmission Date: 20060501
  Serious: Yes (Other)
  Sender: FDA-Public Use
  Company Number: 2004067843

PATIENT
  Age: 31 Year
  Sex: Male

DRUGS (2)
  1. NEURONTIN [Suspect]
     Indication: ANXIETY
  2. NEURONTIN [Suspect]
     Indication: DEPRESSION

REACTIONS (1)
  - SUICIDE ATTEMPT [None]
